FAERS Safety Report 10673270 (Version 4)
Quarter: 2015Q2

REPORT INFORMATION
  Report Type: Report from Study
  Country: CA (occurrence: CA)
  Receive Date: 20141224
  Receipt Date: 20150513
  Transmission Date: 20150821
  Serious: Yes (Hospitalization, Other)
  Sender: FDA-Public Use
  Company Number: CA-ROCHE-1107878

PATIENT
  Age: 56 Year
  Sex: Female
  Weight: 65 kg

DRUGS (10)
  1. ACTEMRA [Suspect]
     Active Substance: TOCILIZUMAB
     Route: 042
     Dates: start: 20130306, end: 20141112
  2. PLAQUENIL [Concomitant]
     Active Substance: HYDROXYCHLOROQUINE SULFATE
  3. ACTEMRA [Suspect]
     Active Substance: TOCILIZUMAB
     Indication: RHEUMATOID ARTHRITIS
     Route: 042
     Dates: start: 20110505
  4. ARAVA [Concomitant]
     Active Substance: LEFLUNOMIDE
  5. FOSAMAX [Concomitant]
     Active Substance: ALENDRONATE SODIUM
  6. ACTEMRA [Suspect]
     Active Substance: TOCILIZUMAB
     Route: 042
     Dates: start: 20110630
  7. ACTEMRA [Suspect]
     Active Substance: TOCILIZUMAB
     Route: 042
     Dates: start: 20120822
  8. CORTISONE [Concomitant]
     Active Substance: CORTISONE\HYDROCORTISONE
  9. SYNTHROID [Concomitant]
     Active Substance: LEVOTHYROXINE SODIUM
  10. CALCITE [Concomitant]
     Active Substance: CALCIUM CARBONATE

REACTIONS (13)
  - Infusion related reaction [Unknown]
  - Pain [Unknown]
  - Weight decreased [Not Recovered/Not Resolved]
  - Heart rate decreased [Unknown]
  - Abdominal distension [Unknown]
  - Urinary tract obstruction [Recovered/Resolved]
  - Joint swelling [Recovering/Resolving]
  - Peripheral swelling [Recovering/Resolving]
  - Cyst [Recovered/Resolved]
  - Arthralgia [Recovering/Resolving]
  - Pain in extremity [Recovering/Resolving]
  - Non-Hodgkin^s lymphoma [Unknown]
  - Arthropathy [Recovering/Resolving]

NARRATIVE: CASE EVENT DATE: 201206
